FAERS Safety Report 7729725-7 (Version None)
Quarter: 2011Q3

REPORT INFORMATION
  Report Type: 
  Country: None (occurrence: None)
  Receive Date: 20110906
  Receipt Date: 20110823
  Transmission Date: 20111222
  Serious: Yes (Hospitalization)
  Sender: FDA-Public Use
  Company Number: KR-NAPPMUNDI-MAG-2011-0001602

PATIENT
  Sex: Male

DRUGS (2)
  1. OXYCODONE HCL [Suspect]
     Indication: ANALGESIC THERAPY
     Dosage: 160 MG, UNK
     Route: 048
     Dates: start: 20090311
  2. OXYCODONE HCL [Suspect]

REACTIONS (2)
  - PAIN IN EXTREMITY [None]
  - MEDICAL DEVICE REMOVAL [None]
